FAERS Safety Report 20956997 (Version 3)
Quarter: 2022Q4

REPORT INFORMATION
  Report Type: Report from Study
  Country: US (occurrence: US)
  Receive Date: 20220614
  Receipt Date: 20221006
  Transmission Date: 20230112
  Serious: No
  Sender: FDA-Public Use
  Company Number: US-BIOVITRUM-2022US07727

PATIENT
  Age: 66 Year
  Sex: Female

DRUGS (3)
  1. KINERET [Suspect]
     Active Substance: ANAKINRA
     Indication: Gout
     Dates: start: 20220601
  2. KINERET [Suspect]
     Active Substance: ANAKINRA
     Dates: start: 202205
  3. KEVZARA [Concomitant]
     Active Substance: SARILUMAB
     Indication: Product used for unknown indication

REACTIONS (11)
  - Pain [Recovered/Resolved]
  - Gout [Unknown]
  - Rhinorrhoea [Recovering/Resolving]
  - Sinusitis [Recovering/Resolving]
  - Musculoskeletal stiffness [Unknown]
  - Hypertension [Unknown]
  - Depressed mood [Unknown]
  - Impaired work ability [Unknown]
  - Product packaging quantity issue [Unknown]
  - Product dose omission in error [Unknown]
  - Off label use [Unknown]

NARRATIVE: CASE EVENT DATE: 20220501
